FAERS Safety Report 6861242-9 (Version None)
Quarter: 2010Q3

REPORT INFORMATION
  Report Type: 
  Country: None (occurrence: None)
  Receive Date: 20100720
  Receipt Date: 20100712
  Transmission Date: 20110219
  Serious: No
  Sender: FDA-Public Use
  Company Number: US-ELI_LILLY_AND_COMPANY-US201006005532

PATIENT
  Sex: Male

DRUGS (4)
  1. CIALIS [Suspect]
     Indication: ERECTILE DYSFUNCTION
     Dosage: 10 MG, UNK
  2. CIALIS [Suspect]
     Dosage: 20 MG, AS NEEDED
     Route: 048
     Dates: start: 20100606
  3. ATIVAN [Concomitant]
     Dosage: 0.5 MG, AS NEEDED
  4. RESTORIL [Concomitant]
     Dosage: 15 MG, AS NEEDED

REACTIONS (2)
  - DRUG INEFFECTIVE [None]
  - VISION BLURRED [None]
